FAERS Safety Report 5014956-X (Version None)
Quarter: 2006Q2

REPORT INFORMATION
  Report Type: 
  Country: None (occurrence: None)
  Receive Date: 20060531
  Receipt Date: 20060113
  Transmission Date: 20061013
  Serious: Yes (Other)
  Sender: FDA-Public Use
  Company Number: US-ROCHE-432358

PATIENT
  Age: 27 Year
  Sex: Male
  Weight: 61.2 kg

DRUGS (2)
  1. ACCUTANE [Suspect]
     Route: 048
     Dates: start: 20001222, end: 20010219
  2. ACCUTANE [Suspect]
     Route: 048
     Dates: start: 20010220, end: 20010615

REACTIONS (15)
  - ACNE [None]
  - COLITIS [None]
  - COLITIS ULCERATIVE [None]
  - DRY EYE [None]
  - EPISTAXIS [None]
  - FATIGUE [None]
  - GASTROINTESTINAL DISORDER [None]
  - GASTROINTESTINAL HAEMORRHAGE [None]
  - GASTROOESOPHAGEAL REFLUX DISEASE [None]
  - HAEMORRHOIDS [None]
  - ILL-DEFINED DISORDER [None]
  - INFLAMMATORY BOWEL DISEASE [None]
  - LIP DRY [None]
  - RECTAL HAEMORRHAGE [None]
  - WEIGHT DECREASED [None]
